FAERS Safety Report 5299226-7 (Version None)
Quarter: 2007Q2

REPORT INFORMATION
  Report Type: 
  Country: None (occurrence: None)
  Receive Date: 20070417
  Receipt Date: 20070406
  Transmission Date: 20071010
  Serious: Yes (Death)
  Sender: FDA-Public Use
  Company Number: US-JNJFOC-20070205196

PATIENT
  Sex: Male
  Weight: 114.76 kg

DRUGS (3)
  1. TOPAMAX [Suspect]
     Indication: CONVULSION PROPHYLAXIS
  2. KLONOPIN [Concomitant]
     Indication: ANXIETY
  3. LEXAPRO [Concomitant]
     Indication: DRUG USE FOR UNKNOWN INDICATION

REACTIONS (3)
  - CARDIAC VENTRICULAR DISORDER [None]
  - CONVULSION [None]
  - HEPATOMEGALY [None]
